FAERS Safety Report 17916502 (Version 2)
Quarter: 2020Q3

REPORT INFORMATION
  Report Type: Spontaneous
  Country: ES (occurrence: ES)
  Receive Date: 20200619
  Receipt Date: 20200701
  Transmission Date: 20201103
  Serious: Yes (Other)
  Sender: FDA-Public Use
  Company Number: ES-STRIDES ARCOLAB LIMITED-2020SP007090

PATIENT
  Age: 76 Year
  Sex: Female

DRUGS (4)
  1. FERROUS GLUCONATE [Suspect]
     Active Substance: FERROUS GLUCONATE
     Indication: ANAEMIA
     Dosage: UNK
     Route: 042
  2. NEORECORMON [Concomitant]
     Active Substance: ERYTHROPOIETIN
     Indication: ANAEMIA
     Dosage: UNK
     Route: 065
  3. CINACALCET. [Suspect]
     Active Substance: CINACALCET
     Indication: HYPERPARATHYROIDISM SECONDARY
     Dosage: UNK
     Route: 065
  4. PARICALCITOL. [Concomitant]
     Active Substance: PARICALCITOL
     Indication: HYPERPARATHYROIDISM
     Dosage: UNK
     Route: 065

REACTIONS (10)
  - Calciphylaxis [Unknown]
  - Erythema [Recovered/Resolved]
  - Skin plaque [Unknown]
  - Vascular calcification [Unknown]
  - Pain [Unknown]
  - Skin ulcer [Recovered/Resolved]
  - Iron overload [Recovered/Resolved]
  - Skin necrosis [Recovered/Resolved]
  - Angiodermatitis [Unknown]
  - Skin lesion [Unknown]
